FAERS Safety Report 8479120-0 (Version None)
Quarter: 2012Q2

REPORT INFORMATION
  Report Type: 
  Country: None (occurrence: None)
  Receive Date: 20120629
  Receipt Date: 20120625
  Transmission Date: 20120825
  Serious: Yes (Other)
  Sender: FDA-Public Use
  Company Number: PHFR2011GB006533

PATIENT
  Sex: Male

DRUGS (1)
  1. CLOZARIL [Suspect]
     Indication: SCHIZOPHRENIA
     Dosage: 600 MG,
     Route: 048
     Dates: start: 20080916

REACTIONS (2)
  - VIRAL UPPER RESPIRATORY TRACT INFECTION [None]
  - DIFFERENTIAL WHITE BLOOD CELL COUNT ABNORMAL [None]
